FAERS Safety Report 9027386 (Version 1)
Quarter: 2013Q1

REPORT INFORMATION
  Report Type: Spontaneous
  Country: US (occurrence: US)
  Receive Date: 20130124
  Receipt Date: 20130124
  Transmission Date: 20140127
  Serious: No
  Sender: FDA-Public Use
  Company Number: US-009507513-1301USA005399

PATIENT
  Sex: Male

DRUGS (2)
  1. PROPECIA [Suspect]
     Indication: SKIN BURNING SENSATION
     Dosage: UNK
     Route: 048
  2. PROPECIA [Suspect]
     Indication: PAIN
     Dosage: 0.5 MG, PRN
     Route: 048

REACTIONS (2)
  - Skin burning sensation [Unknown]
  - Wrong technique in drug usage process [Unknown]
